FAERS Safety Report 8866167 (Version 2)
Quarter: 2012Q4

REPORT INFORMATION
  Report Type: 
  Country: TR (occurrence: TR)
  Receive Date: 20121025
  Receipt Date: 20121108
  Transmission Date: 20130627
  Serious: Yes (Other)
  Sender: FDA-Public Use
  Company Number: TR-ROCHE-1145790

PATIENT
  Age: 49 Year
  Sex: Female

DRUGS (1)
  1. BEVACIZUMAB [Suspect]
     Indication: CYSTOID MACULAR OEDEMA
     Dosage: 3 injection
     Route: 050

REACTIONS (1)
  - Macular hole [Unknown]
